FAERS Safety Report 6183516-X (Version None)
Quarter: 2009Q2

REPORT INFORMATION
  Report Type: 
  Country: None (occurrence: None)
  Receive Date: 20090506
  Receipt Date: 20090430
  Transmission Date: 20091009
  Serious: Yes (Other)
  Sender: FDA-Public Use
  Company Number: 193420USA

PATIENT
  Age: 21 Year
  Sex: Female
  Weight: 54.4316 kg

DRUGS (1)
  1. PLAN B [Suspect]
     Indication: POST COITAL CONTRACEPTION
     Dosage: 1.5 MG (0.75 MG, 2 IN 1 D), ORAL
     Route: 048
     Dates: start: 20090424, end: 20090424

REACTIONS (3)
  - HYPOMENORRHOEA [None]
  - LOSS OF CONSCIOUSNESS [None]
  - MENSTRUATION DELAYED [None]
